FAERS Safety Report 10032734 (Version 1)
Quarter: 2014Q1

REPORT INFORMATION
  Report Type: Spontaneous
  Country: FI (occurrence: FI)
  Receive Date: 20140324
  Receipt Date: 20140324
  Transmission Date: 20141002
  Serious: Yes (Hospitalization)
  Sender: FDA-Public Use
  Company Number: FI-GE HEALTHCARE MEDICAL DIAGNOSTICS-OMPQ-PR-1403S-0268

PATIENT
  Age: 38 Year
  Sex: Female

DRUGS (4)
  1. OMNIPAQUE [Suspect]
     Indication: PRODUCT USED FOR UNKNOWN INDICATION
     Route: 042
     Dates: start: 20140303, end: 20140303
  2. OMNIPAQUE [Suspect]
     Indication: DIAGNOSTIC PROCEDURE
  3. VENTOLINE [Concomitant]
  4. ANTIHISTAMINE ALLERGY RELIEF [Concomitant]

REACTIONS (4)
  - Urticaria [Recovering/Resolving]
  - Lacrimation increased [Unknown]
  - Dyspnoea [Recovering/Resolving]
  - Pruritus [Unknown]
